FAERS Safety Report 14419547 (Version 1)
Quarter: 2018Q1

REPORT INFORMATION
  Report Type: Spontaneous
  Country: RU (occurrence: RU)
  Receive Date: 20180122
  Receipt Date: 20180122
  Transmission Date: 20180509
  Serious: Yes (Other)
  Sender: FDA-Public Use
  Company Number: RU-SA-2018SA008264

PATIENT
  Sex: Female

DRUGS (3)
  1. SOLOSTAR [Suspect]
     Active Substance: DEVICE
     Indication: DIABETES MELLITUS
  2. TOUJEO [Suspect]
     Active Substance: INSULIN GLARGINE
     Indication: DIABETES MELLITUS
     Route: 051
  3. LANTUS [Concomitant]
     Active Substance: INSULIN GLARGINE
     Indication: DIABETES MELLITUS
     Route: 065

REACTIONS (9)
  - Blood pressure increased [Unknown]
  - Angina pectoris [Unknown]
  - Hepatic pain [Unknown]
  - Headache [Unknown]
  - Weight increased [Unknown]
  - Diabetes mellitus [Unknown]
  - Heart rate increased [Unknown]
  - Abdominal pain upper [Unknown]
  - Blood glucose increased [Unknown]
